FAERS Safety Report 9596224 (Version 2)
Quarter: 2014Q2

REPORT INFORMATION
  Report Type: Spontaneous
  Country: US (occurrence: US)
  Receive Date: 20131004
  Receipt Date: 20140530
  Transmission Date: 20141212
  Serious: No
  Sender: FDA-Public Use
  Company Number: US-009507513-1310USA001954

PATIENT
  Age: 82 Year
  Sex: Female

DRUGS (1)
  1. MIRALAX [Suspect]
     Indication: CONSTIPATION
     Dosage: UNK UNK, UNKNOWN
     Route: 048

REACTIONS (5)
  - Rectal haemorrhage [Unknown]
  - Hernia [Unknown]
  - Mucous stools [Unknown]
  - Drug effect delayed [Unknown]
  - Medication error [Unknown]
